FAERS Safety Report 4956785-9 (Version None)
Quarter: 2006Q1

REPORT INFORMATION
  Report Type: 
  Country: None (occurrence: None)
  Receive Date: 20060323
  Receipt Date: 20060310
  Transmission Date: 20060701
  Serious: Yes (Hospitalization)
  Sender: FDA-Public Use
  Company Number: 2006035965

PATIENT
  Age: 54 Year
  Sex: Female

DRUGS (8)
  1. ARTHROTEC [Suspect]
     Indication: ILL-DEFINED DISORDER
     Dosage: 75 MG (75 MG, 1 IN 1 D), ORAL
     Route: 048
  2. ENOXAPARIN SODIUM [Suspect]
     Indication: ILL-DEFINED DISORDER
     Dosage: 90 MG (90 MG, 1 IN 1 D), SUBCUTANEOUS
     Route: 058
     Dates: start: 20060127, end: 20060130
  3. PLAVIX [Suspect]
     Indication: ILL-DEFINED DISORDER
     Dosage: 75 MCG (75 MCG, 1 IN 1 D), ORAL
     Route: 048
  4. ASPIRIN [Suspect]
     Indication: ILL-DEFINED DISORDER
     Dosage: 75 MCG (75 MCG, 1 IN 1 D), ORAL
     Route: 047
  5. ATENOMEL (ATENOLOL) [Concomitant]
  6. LOSEC (OMEPRAZOLE) [Concomitant]
  7. BENERVA (THIAMINE HYDROCHLORIDE) [Concomitant]
  8. ZOLPIDEM TARTRATE [Concomitant]

REACTIONS (1)
  - HAEMATOMA [None]
